FAERS Safety Report 7964497-2 (Version None)
Quarter: 2011Q4

REPORT INFORMATION
  Report Type: 
  Country: None (occurrence: None)
  Receive Date: 20111206
  Receipt Date: 20111128
  Transmission Date: 20120403
  Serious: Yes (Hospitalization, Other)
  Sender: FDA-Public Use
  Company Number: INT_00046_2011

PATIENT
  Age: 15 Year
  Sex: Female

DRUGS (1)
  1. CEFEPIME [Suspect]
     Indication: PYREXIA
     Dosage: (1 G 1X/12 HOURS, 100 MG/KG PER DAY INTRAVENOUS (NOT OTHERWISE SPECIFIED)
     Route: 042

REACTIONS (8)
  - BLOOD CREATININE INCREASED [None]
  - MYOCLONUS [None]
  - STATUS EPILEPTICUS [None]
  - LETHARGY [None]
  - DEPRESSED LEVEL OF CONSCIOUSNESS [None]
  - BLOOD UREA INCREASED [None]
  - HYPERREFLEXIA [None]
  - CONFUSIONAL STATE [None]
